FAERS Safety Report 5355274-X (Version None)
Quarter: 2007Q2

REPORT INFORMATION
  Report Type: 
  Country: None (occurrence: None)
  Receive Date: 20070611
  Receipt Date: 20070529
  Transmission Date: 20071010
  Serious: Yes (Death)
  Sender: FDA-Public Use
  Company Number: S06-USA-02936-01

PATIENT
  Age: 27 Year
  Sex: Male

DRUGS (1)
  1. LEXAPRO [Suspect]
     Dates: start: 20030101, end: 20030223

REACTIONS (2)
  - COMPLETED SUICIDE [None]
  - GUN SHOT WOUND [None]
